FAERS Safety Report 9309459 (Version 1)
Quarter: 2013Q2

REPORT INFORMATION
  Report Type: Spontaneous
  Country: US (occurrence: US)
  Receive Date: 20130525
  Receipt Date: 20130525
  Transmission Date: 20140414
  Serious: No
  Sender: FDA-Public Use
  Company Number: US-BRISTOL-MYERS SQUIBB COMPANY-18714592

PATIENT
  Age: 61 Year
  Sex: Female
  Weight: 72.56 kg

DRUGS (4)
  1. BYDUREON [Suspect]
     Indication: TYPE 2 DIABETES MELLITUS
     Route: 058
     Dates: start: 201303
  2. HUMALOG [Concomitant]
     Indication: TYPE 2 DIABETES MELLITUS
  3. NPH [Concomitant]
     Indication: TYPE 2 DIABETES MELLITUS
  4. ANTIVERT [Concomitant]
     Indication: BALANCE DISORDER
     Route: 048

REACTIONS (3)
  - Blood creatinine abnormal [Unknown]
  - Protein total abnormal [Unknown]
  - Off label use [Not Recovered/Not Resolved]
